FAERS Safety Report 22238462 (Version 1)
Quarter: 2023Q2

REPORT INFORMATION
  Report Type: Spontaneous
  Country: UZ (occurrence: UZ)
  Receive Date: 20230421
  Receipt Date: 20230421
  Transmission Date: 20230722
  Serious: Yes (Hospitalization)
  Sender: FDA-Public Use
  Company Number: UZ-JNJFOC-20230428928

PATIENT
  Age: 19 Year
  Sex: Female
  Weight: 57 kg

DRUGS (14)
  1. SIRTURO [Suspect]
     Active Substance: BEDAQUILINE FUMARATE
     Indication: Pulmonary tuberculosis
     Route: 048
     Dates: start: 20230302, end: 20230311
  2. SIRTURO [Suspect]
     Active Substance: BEDAQUILINE FUMARATE
     Dosage: 100-200-400 MG
     Route: 048
     Dates: start: 20230327, end: 20230331
  3. SIRTURO [Suspect]
     Active Substance: BEDAQUILINE FUMARATE
     Dosage: 200 MG 3\7
     Route: 048
     Dates: start: 20230331, end: 20230405
  4. CLOFAZIMINE [Suspect]
     Active Substance: CLOFAZIMINE
     Indication: Pulmonary tuberculosis
     Dosage: 100 MG 7\7
     Route: 048
     Dates: start: 20230302, end: 20230311
  5. CLOFAZIMINE [Suspect]
     Active Substance: CLOFAZIMINE
     Dosage: 100 MG 7\7
     Route: 048
     Dates: start: 20230329, end: 20230405
  6. MOXIFLOXACIN [Suspect]
     Active Substance: MOXIFLOXACIN
     Indication: Pulmonary tuberculosis
     Route: 048
     Dates: start: 20230302, end: 20230311
  7. MOXIFLOXACIN [Suspect]
     Active Substance: MOXIFLOXACIN
     Route: 048
     Dates: start: 20230315, end: 20230316
  8. MOXIFLOXACIN [Suspect]
     Active Substance: MOXIFLOXACIN
     Route: 048
     Dates: start: 20230403, end: 20230404
  9. LINEZOLID [Suspect]
     Active Substance: LINEZOLID
     Indication: Pulmonary tuberculosis
     Dosage: 600 MG 7\7
     Route: 048
     Dates: start: 20230302, end: 20230311
  10. LINEZOLID [Suspect]
     Active Substance: LINEZOLID
     Dosage: 300-600 MG 7\7
     Route: 048
     Dates: start: 20230330, end: 20230405
  11. SILIDRON [Concomitant]
  12. OMEPRAZOLE [Concomitant]
     Active Substance: OMEPRAZOLE
  13. METOCLOPRAMIDE [Concomitant]
     Active Substance: METOCLOPRAMIDE
  14. BISACODYL [Concomitant]
     Active Substance: BISACODYL

REACTIONS (1)
  - Toxic skin eruption [Recovering/Resolving]

NARRATIVE: CASE EVENT DATE: 20230311
